FAERS Safety Report 10423772 (Version 3)
Quarter: 2015Q1

REPORT INFORMATION
  Report Type: Spontaneous
  Country: US (occurrence: None)
  Receive Date: 20140722
  Receipt Date: 20150120
  Transmission Date: 20150720
  Serious: Yes (Other)
  Sender: FDA-Public Use
  Company Number: AEGR000497

PATIENT
  Age: 36 Year
  Sex: Female
  Weight: 94.8 kg

DRUGS (1)
  1. JUXTAPID [Suspect]
     Active Substance: LOMITAPIDE MESYLATE
     Indication: TYPE IIA HYPERLIPIDAEMIA
     Route: 048
     Dates: start: 20130312, end: 20131218

REACTIONS (2)
  - Liver function test abnormal [None]
  - Product used for unknown indication [None]

NARRATIVE: CASE EVENT DATE: 201303
